FAERS Safety Report 11926795 (Version 1)
Quarter: 2016Q1

REPORT INFORMATION
  Report Type: Spontaneous
  Country: TW (occurrence: TW)
  Receive Date: 20160119
  Receipt Date: 20160119
  Transmission Date: 20160526
  Serious: Yes (Death)
  Sender: FDA-Public Use
  Company Number: TW-PFIZER INC-2016016795

PATIENT
  Age: 5 Decade
  Sex: Female

DRUGS (1)
  1. XALKORI [Suspect]
     Active Substance: CRIZOTINIB
     Indication: NEOPLASM MALIGNANT
     Dosage: UNK

REACTIONS (4)
  - Neoplasm malignant [Unknown]
  - Death [Fatal]
  - Disease progression [Unknown]
  - Asthenia [Unknown]

NARRATIVE: CASE EVENT DATE: 201512
